APPROVED DRUG PRODUCT: LIDOCAINE
Active Ingredient: LIDOCAINE
Strength: 5%
Dosage Form/Route: PATCH;TOPICAL
Application: A209190 | Product #001 | TE Code: AB
Applicant: IBSA INSTITUT BIOCHIMIQUE SA
Approved: Apr 30, 2020 | RLD: No | RS: No | Type: RX